FAERS Safety Report 6052546-0 (Version None)
Quarter: 2009Q1

REPORT INFORMATION
  Report Type: 
  Country: None (occurrence: None)
  Receive Date: 20090116
  Receipt Date: 20081231
  Transmission Date: 20090719
  Serious: Yes (Hospitalization)
  Sender: FDA-Public Use
  Company Number: 8040808

PATIENT
  Age: 24 Year
  Sex: Male
  Weight: 113.4 kg

DRUGS (9)
  1. CIMZIA [Suspect]
     Indication: CROHN'S DISEASE
     Dosage: 400 MG SC
     Route: 058
     Dates: start: 20080814
  2. ALBUTEROL SULATE [Concomitant]
  3. PENTASA [Concomitant]
  4. AZATHIOPRINE [Concomitant]
  5. PREDNISONE TAB [Concomitant]
  6. DICYCLOMINE [Concomitant]
  7. HYOMAX SL [Concomitant]
  8. TYLENOL [Concomitant]
  9. PROMETHAZINE [Concomitant]

REACTIONS (7)
  - ARTHRALGIA [None]
  - BACK PAIN [None]
  - FATIGUE [None]
  - INFECTION [None]
  - JOINT STIFFNESS [None]
  - MUSCULOSKELETAL PAIN [None]
  - MYALGIA [None]
